FAERS Safety Report 8969136 (Version 1)
Quarter: 2012Q4

REPORT INFORMATION
  Report Type: Spontaneous
  Country: US (occurrence: None)
  Receive Date: 20121214
  Receipt Date: 20121214
  Transmission Date: 20130627
  Serious: Yes (Other)
  Sender: FDA-Public Use
  Company Number: None

PATIENT
  Age: 62 Year
  Sex: Female
  Weight: 63.5 kg

DRUGS (1)
  1. SUBUTEX [Suspect]
     Indication: ARTHRITIS MULTIPLE JOINT
     Dosage: one year
     Route: 060
     Dates: start: 20120101, end: 20121211

REACTIONS (3)
  - Anxiety [None]
  - Blood pressure increased [None]
  - Product substitution issue [None]
